FAERS Safety Report 10037548 (Version 1)
Quarter: 2014Q1

REPORT INFORMATION
  Report Type: Spontaneous
  Country: US (occurrence: None)
  Receive Date: 20140325
  Receipt Date: 20140325
  Transmission Date: 20141002
  Serious: No
  Sender: FDA-Public Use
  Company Number: None

PATIENT
  Age: 64 Year
  Sex: Male
  Weight: 88.45 kg

DRUGS (4)
  1. TRELSTAR [Suspect]
     Indication: PROSTATE CANCER
     Route: 030
     Dates: start: 20140317
  2. ASPIRIN [Concomitant]
  3. LISINOPRIL [Concomitant]
  4. ZIAC [Concomitant]

REACTIONS (2)
  - Arthralgia [None]
  - Back pain [None]
